FAERS Safety Report 9742552 (Version 4)
Quarter: 2014Q3

REPORT INFORMATION
  Report Type: Report from Study
  Country: US (occurrence: US)
  Receive Date: 20131210
  Receipt Date: 20140715
  Transmission Date: 20150326
  Serious: Yes (Hospitalization)
  Sender: FDA-Public Use
  Company Number: US-BRISTOL-MYERS SQUIBB COMPANY-19425842

PATIENT
  Age: 55 Year
  Sex: Female
  Weight: 105.89 kg

DRUGS (36)
  1. PROPOFOL. [Concomitant]
     Active Substance: PROPOFOL
     Dates: start: 20130911, end: 20130911
  2. NORVASC [Concomitant]
     Active Substance: AMLODIPINE BESYLATE
     Dates: start: 20130912, end: 20130912
  3. ESIDRIX [Concomitant]
     Active Substance: HYDROCHLOROTHIAZIDE
     Dates: start: 20130913, end: 20130913
  4. IPILIMUMAB [Suspect]
     Active Substance: IPILIMUMAB
     Indication: MALIGNANT MELANOMA
     Dosage: 3MG/KG
     Route: 042
     Dates: start: 20130813, end: 20130924
  5. CRESTOR [Concomitant]
     Active Substance: ROSUVASTATIN CALCIUM
     Dates: start: 20130730
  6. FENTANYL. [Concomitant]
     Active Substance: FENTANYL
     Dates: start: 20130911, end: 20130911
  7. SUCCINYLCHOLINE [Concomitant]
     Active Substance: SUCCINYLCHOLINE
     Dates: start: 20130911, end: 20130911
  8. AMLODIPINE [Concomitant]
     Active Substance: AMLODIPINE BESYLATE
     Dosage: 27AUG-29AUG2013
     Dates: start: 20070703, end: 20130903
  9. OMEPRAZOLE. [Concomitant]
     Active Substance: OMEPRAZOLE
     Dates: start: 20130730, end: 20131105
  10. ONDANSETRON [Concomitant]
     Active Substance: ONDANSETRON
     Dosage: 27AUG-29AUG2013,11SEP-18SEP2013
     Dates: start: 20130827, end: 20130918
  11. OXYCODONE [Concomitant]
     Active Substance: OXYCODONE
     Dates: start: 20130913, end: 20130913
  12. VITAMIN D [Concomitant]
     Active Substance: CHOLECALCIFEROL
     Dates: start: 20080730
  13. POTASSIUM CHLORIDE. [Concomitant]
     Active Substance: POTASSIUM CHLORIDE
     Dosage: 27AG-28AUG2013,03SEP-04SEP2013,12-SEP-12SEP2013
     Dates: start: 20130827, end: 20130912
  14. SCOPOLAMINE [Concomitant]
     Active Substance: SCOPOLAMINE
     Dosage: PATCH
     Dates: start: 20130912, end: 20130912
  15. ULTRAM [Concomitant]
     Active Substance: TRAMADOL HYDROCHLORIDE
     Dates: start: 20130816
  16. HEPARIN [Concomitant]
     Active Substance: HEPARIN SODIUM
     Dosage: 27AUG-29AUG2013,11SEP-13SEP2013
     Dates: start: 20130827, end: 20130913
  17. LORATADINE. [Concomitant]
     Active Substance: LORATADINE
     Dates: start: 20130827, end: 20130829
  18. OXYCODONE HCL + ACETAMINOPHEN [Concomitant]
     Active Substance: ACETAMINOPHEN\OXYCODONE HYDROCHLORIDE
     Dates: start: 20130829
  19. CLINDAMYCIN [Concomitant]
     Active Substance: CLINDAMYCIN\CLINDAMYCIN PHOSPHATE
     Dates: start: 20130911, end: 20130911
  20. NEOSTIGMINE [Concomitant]
     Active Substance: NEOSTIGMINE
     Dates: start: 20130911, end: 20130911
  21. ZOFRAN [Concomitant]
     Active Substance: ONDANSETRON HYDROCHLORIDE
     Dates: start: 20130816
  22. ROSUVASTATIN [Concomitant]
     Active Substance: ROSUVASTATIN
     Dates: start: 20130827, end: 20130828
  23. HYDROCODONE, ACETAMINOPHEN [Concomitant]
     Active Substance: ACETAMINOPHEN\HYDROCODONE BITARTRATE
     Dates: start: 20130911, end: 20130912
  24. HYDROMORPHONE [Concomitant]
     Active Substance: HYDROMORPHONE
     Dates: start: 20130911, end: 20130912
  25. LISINOPRIL AND HYDROCHLOROTHIAZIDE [Concomitant]
     Active Substance: HYDROCHLOROTHIAZIDE\LISINOPRIL
     Dates: start: 20030730, end: 20130903
  26. METFORMIN [Concomitant]
     Active Substance: METFORMIN HYDROCHLORIDE
     Dates: start: 20130730, end: 20130902
  27. IMODIUM [Concomitant]
     Active Substance: LOPERAMIDE HYDROCHLORIDE
     Dates: start: 20130821, end: 20130913
  28. CHOLECALCIFEROL [Concomitant]
     Active Substance: CHOLECALCIFEROL
     Dates: start: 20130827, end: 20130829
  29. PROMETHAZINE [Concomitant]
     Active Substance: PROMETHAZINE\PROMETHAZINE HYDROCHLORIDE
     Dosage: 29AUG-29AUG2013,12SEP-12SEP2013
     Dates: start: 20130829, end: 20130912
  30. PHENYLEPHRINE [Concomitant]
     Active Substance: PHENYLEPHRINE\PHENYLEPHRINE HYDROCHLORIDE
     Dates: start: 20130911, end: 20130911
  31. ULTRAM [Concomitant]
     Active Substance: TRAMADOL HYDROCHLORIDE
     Dates: start: 20130911, end: 20130912
  32. ZYRTEC [Concomitant]
     Active Substance: CETIRIZINE HYDROCHLORIDE
     Dates: start: 20050630
  33. GLYCOPYRROLATE. [Concomitant]
     Active Substance: GLYCOPYRROLATE
     Dates: start: 20130911, end: 20130911
  34. LIDOCAINE. [Concomitant]
     Active Substance: LIDOCAINE
     Dates: start: 20130911, end: 20130911
  35. PLASMA-LYTE [Concomitant]
     Active Substance: ELECTROLYTES NOS
     Dates: start: 20130911, end: 20130911
  36. VECURONIUM [Concomitant]
     Active Substance: VECURONIUM BROMIDE
     Dates: start: 20130911, end: 20130911

REACTIONS (4)
  - Colitis [Recovered/Resolved with Sequelae]
  - Malignant melanoma [None]
  - Cholecystitis [Recovered/Resolved]
  - Headache [None]

NARRATIVE: CASE EVENT DATE: 20130911
